FAERS Safety Report 19037854 (Version 1)
Quarter: 2021Q1

REPORT INFORMATION
  Report Type: Spontaneous
  Country: US (occurrence: US)
  Receive Date: 20210322
  Receipt Date: 20210322
  Transmission Date: 20210420
  Serious: Yes (Other)
  Sender: FDA-Public Use
  Company Number: None

PATIENT
  Age: 64 Year
  Sex: Female
  Weight: 83.25 kg

DRUGS (16)
  1. ROXICODONE [Concomitant]
     Active Substance: OXYCODONE HYDROCHLORIDE
  2. CIPRO [Concomitant]
     Active Substance: CIPROFLOXACIN HYDROCHLORIDE
  3. OMEPRAZOLE. [Concomitant]
     Active Substance: OMEPRAZOLE
  4. PREDNISONE. [Concomitant]
     Active Substance: PREDNISONE
  5. LYRICA [Concomitant]
     Active Substance: PREGABALIN
  6. ONDANSETRON [Concomitant]
     Active Substance: ONDANSETRON
  7. TEMOZOLOMIDE. [Suspect]
     Active Substance: TEMOZOLOMIDE
     Indication: MALIGNANT MELANOMA
     Dosage: ?          OTHER FREQUENCY:DAILY FOR 5 DAYS;?
     Route: 048
     Dates: start: 20210130, end: 20210322
  8. PRINIVIL [Concomitant]
     Active Substance: LISINOPRIL
  9. FEXOFENADINE [Concomitant]
     Active Substance: FEXOFENADINE HYDROCHLORIDE
  10. LIPITOR [Concomitant]
     Active Substance: ATORVASTATIN CALCIUM
  11. TIMOLOL. [Concomitant]
     Active Substance: TIMOLOL
  12. OXYCODONE [Concomitant]
     Active Substance: OXYCODONE
  13. ALBUTEROL HFA [Concomitant]
     Active Substance: ALBUTEROL SULFATE
  14. CYCLOBENZAPRINE. [Concomitant]
     Active Substance: CYCLOBENZAPRINE
  15. METFORMIN [Concomitant]
     Active Substance: METFORMIN HYDROCHLORIDE
  16. AMOXICILLIN. [Concomitant]
     Active Substance: AMOXICILLIN

REACTIONS (1)
  - Disease progression [None]

NARRATIVE: CASE EVENT DATE: 20210322
